FAERS Safety Report 7981534-X (Version None)
Quarter: 2011Q4

REPORT INFORMATION
  Report Type: 
  Country: None (occurrence: None)
  Receive Date: 20111215
  Receipt Date: 20111213
  Transmission Date: 20120403
  Serious: Yes (Hospitalization, Other)
  Sender: FDA-Public Use
  Company Number: US-PFIZER INC-K201100918

PATIENT
  Sex: Male
  Weight: 72.562 kg

DRUGS (9)
  1. ALTACE [Suspect]
     Indication: BLOOD PRESSURE
     Dosage: 5 MG, DAILY
     Route: 048
  2. PLAVIX [Suspect]
     Indication: PROPHYLAXIS
     Dosage: 75MG, DAILY
     Route: 048
     Dates: start: 20091201
  3. PLAVIX [Suspect]
     Indication: STENT PLACEMENT
  4. XANAX [Suspect]
     Indication: ANXIETY
     Dosage: 0.5 MG, 2X/DAY
     Route: 048
  5. NORVASC [Suspect]
     Indication: BLOOD PRESSURE
     Dosage: 10MG, DAILY
     Route: 048
  6. BACLOFEN [Suspect]
     Indication: MUSCLE SPASMS
     Dosage: 10 MG, 5X/DAY
     Route: 048
  7. LORTAB [Suspect]
     Indication: PAIN
     Dosage: 10 MG, AS NEEDED
     Route: 048
  8. NEURONTIN [Suspect]
     Indication: NERVOUS SYSTEM DISORDER
     Dosage: 100 MG, 2X/DAY
     Route: 048
  9. TRAMADOL [Concomitant]
     Indication: PAIN
     Dosage: 50 MG, UNK

REACTIONS (5)
  - GASTRIC ULCER [None]
  - CARDIAC DISORDER [None]
  - CONVULSION [None]
  - CARDIAC PACEMAKER INSERTION [None]
  - HAEMORRHAGE [None]
